FAERS Safety Report 12932913 (Version 1)
Quarter: 2016Q4

REPORT INFORMATION
  Report Type: Spontaneous
  Country: US (occurrence: US)
  Receive Date: 20161111
  Receipt Date: 20161111
  Transmission Date: 20170207
  Serious: Yes (Other)
  Sender: FDA-Public Use
  Company Number: US-TEVA-711081ACC

PATIENT
  Age: 19 Year
  Sex: Female
  Weight: 63.56 kg

DRUGS (1)
  1. PARAGARD T 380A [Suspect]
     Active Substance: COPPER
     Indication: CONTRACEPTION
     Dates: start: 201509, end: 20161101

REACTIONS (7)
  - Dysmenorrhoea [Unknown]
  - Ovarian cyst [Unknown]
  - Hydrometra [Unknown]
  - Cyst rupture [Unknown]
  - Abdominal pain lower [Recovered/Resolved]
  - Device dislocation [Recovered/Resolved]
  - Swelling [Unknown]

NARRATIVE: CASE EVENT DATE: 20160915
